FAERS Safety Report 8797516 (Version 1)
Quarter: 2012Q4

REPORT INFORMATION
  Report Type: 
  Country: IT (occurrence: IT)
  Receive Date: 20120920
  Receipt Date: 20120920
  Transmission Date: 20130627
  Serious: Yes (Other)
  Sender: FDA-Public Use
  Company Number: PHHY2012IT080319

PATIENT
  Age: 24 Year
  Sex: Male

DRUGS (4)
  1. LEPONEX [Suspect]
     Indication: SCHIZOPHRENIA
     Dosage: 425 mg, QD
     Route: 048
  2. TOLEP [Suspect]
     Indication: SCHIZOPHRENIA
     Dosage: 600 mg, QD
  3. INDERAL [Suspect]
     Indication: SCHIZOPHRENIA
     Dosage: 40 mg, QD
  4. DELORAZEPAM [Suspect]

REACTIONS (2)
  - Aggression [Unknown]
  - Hallucination [Unknown]
